FAERS Safety Report 5356641-0 (Version None)
Quarter: 2007Q2

REPORT INFORMATION
  Report Type: 
  Country: None (occurrence: None)
  Receive Date: 20070614
  Receipt Date: 20070607
  Transmission Date: 20071010
  Serious: Yes (Hospitalization)
  Sender: FDA-Public Use
  Company Number: JP-BAYER-200710370BYL

PATIENT
  Age: 79 Year
  Sex: Male
  Weight: 46 kg

DRUGS (7)
  1. AVELOX [Suspect]
     Indication: PNEUMONIA
     Dosage: TOTAL DAILY DOSE: 400 MG  UNIT DOSE: 400 MG
     Route: 048
     Dates: start: 20070504, end: 20070511
  2. MINOCYCLINE HCL [Suspect]
     Indication: PNEUMONIA
     Dosage: TOTAL DAILY DOSE: 200 MG  UNIT DOSE: 100 MG
     Route: 041
     Dates: start: 20070504, end: 20070511
  3. SIGMART [Concomitant]
     Indication: ANGINA PECTORIS
     Dosage: TOTAL DAILY DOSE: 15 MG  UNIT DOSE: 5 MG
     Route: 048
     Dates: start: 20000401, end: 20070511
  4. ITOROL [Concomitant]
     Indication: ANGINA PECTORIS
     Dosage: TOTAL DAILY DOSE: 60 MG  UNIT DOSE: 20 MG
     Route: 048
     Dates: start: 20000401, end: 20070511
  5. CIBENOL [Concomitant]
     Indication: ATRIAL FIBRILLATION
     Dosage: TOTAL DAILY DOSE: 150 MG  UNIT DOSE: 50 MG
     Route: 048
     Dates: start: 20000401, end: 20070511
  6. THYRADIN S [Concomitant]
     Indication: HYPOTHYROIDISM
     Dosage: TOTAL DAILY DOSE: 50 ?G  UNIT DOSE: 25 ?G
     Dates: start: 20001128, end: 20070511
  7. UNIPHYL [Concomitant]
     Indication: CHRONIC OBSTRUCTIVE PULMONARY DISEASE
     Dosage: TOTAL DAILY DOSE: 400 MG  UNIT DOSE: 200 MG
     Route: 048
     Dates: start: 20010316, end: 20070511

REACTIONS (4)
  - ACTIVATED PARTIAL THROMBOPLASTIN TIME PROLONGED [None]
  - BLOOD CREATINE PHOSPHOKINASE INCREASED [None]
  - PLATELET COUNT DECREASED [None]
  - WHITE BLOOD CELL COUNT DECREASED [None]
